FAERS Safety Report 5836221-0 (Version None)
Quarter: 2008Q3

REPORT INFORMATION
  Report Type: 
  Country: None (occurrence: None)
  Receive Date: 20080805
  Receipt Date: 20080721
  Transmission Date: 20090109
  Serious: Yes (Hospitalization)
  Sender: FDA-Public Use
  Company Number: 2008S1013029

PATIENT
  Age: 68 Year
  Sex: Male
  Weight: 68 kg

DRUGS (20)
  1. AG-013,736 (5 MG) [Suspect]
     Indication: PANCREATIC CARCINOMA
     Dosage: 5 MG; TWICE A DAY; ORAL
     Route: 048
     Dates: start: 20060227, end: 20060405
  2. GEMCITABINE [Suspect]
     Indication: PANCREATIC CARCINOMA
     Dosage: 1820 MG; X1; ORAL
     Route: 048
     Dates: start: 20060227, end: 20060306
  3. OXYCONTIN [Suspect]
     Dosage: ORAL
     Route: 048
     Dates: start: 20060221
  4. LORAZEPAM [Suspect]
     Indication: ANXIETY
     Dosage: ORAL
     Route: 048
     Dates: start: 20060324
  5. LACTULOSE [Concomitant]
  6. CARVEDILOL [Concomitant]
  7. DIVALPROEX [Concomitant]
  8. ACETYLSALICYLIC ACID [Concomitant]
  9. MULTI-VITAMINS [Concomitant]
  10. VITAMIN B /00056201/ [Concomitant]
  11. TAMSULOSIN HCL [Concomitant]
  12. SIMVASTATIN [Concomitant]
  13. NEXIUM /014 9302/ [Concomitant]
  14. OXYCODONE HCL [Concomitant]
  15. LEVAQUIN [Concomitant]
  16. ZOLOFT [Concomitant]
  17. ALUMINUM HYDROXIDE [Concomitant]
  18. DIPHENHYDRAMINE HYDROCHLORIDE [Concomitant]
  19. LIDOCAINE HYDROCHLORIDE [Concomitant]
  20. MAGNESIUM HYDROXIDE TAB [Concomitant]

REACTIONS (9)
  - BENIGN PROSTATIC HYPERPLASIA [None]
  - BLOOD CHOLESTEROL INCREASED [None]
  - BRADYCARDIA [None]
  - DRUG INTERACTION [None]
  - HEART RATE INCREASED [None]
  - HYPOTENSION [None]
  - MENTAL STATUS CHANGES [None]
  - PNEUMONIA [None]
  - PSYCHOTIC DISORDER [None]
